FAERS Safety Report 16672066 (Version 1)
Quarter: 2019Q3

REPORT INFORMATION
  Report Type: Spontaneous
  Country: US (occurrence: US)
  Receive Date: 20190620
  Receipt Date: 20190620
  Transmission Date: 20191004
  Serious: No
  Sender: FDA-Public Use
  Company Number: None

PATIENT
  Age: 65 Year
  Sex: Female

DRUGS (13)
  1. CAPECITABINE  TAB 500MG TAB [Suspect]
     Active Substance: CAPECITABINE
     Indication: NEOPLASM MALIGNANT
     Dosage: ?          OTHER FREQUENCY:BID FOR 7 DAYS;?
     Route: 048
     Dates: start: 20181109
  2. METFORMIN [Concomitant]
     Active Substance: METFORMIN HYDROCHLORIDE
  3. VITAMIN D3 [Concomitant]
     Active Substance: CHOLECALCIFEROL
  4. VITAMIN E POW SUCCINAT [Concomitant]
  5. DIAZEPAM. [Concomitant]
     Active Substance: DIAZEPAM
  6. PENTOXIFYLLI [Concomitant]
  7. CYCLOBENZAPAR [Concomitant]
  8. HYSINGLEAR [Concomitant]
  9. VENILAFAXINE [Concomitant]
  10. DULOXETINE. [Concomitant]
     Active Substance: DULOXETINE
  11. LYRICA [Concomitant]
     Active Substance: PREGABALIN
  12. HYDEOMORPHON [Concomitant]
  13. SIMVASTATIN. [Concomitant]
     Active Substance: SIMVASTATIN

REACTIONS (2)
  - Condition aggravated [None]
  - Oral discomfort [None]

NARRATIVE: CASE EVENT DATE: 201906
